FAERS Safety Report 10069766 (Version 3)
Quarter: 2014Q2

REPORT INFORMATION
  Report Type: Spontaneous
  Country: IL (occurrence: IL)
  Receive Date: 20140410
  Receipt Date: 20140519
  Transmission Date: 20141212
  Serious: Yes (Other)
  Sender: FDA-Public Use
  Company Number: IL-009507513-1404ISR002325

PATIENT
  Sex: Female

DRUGS (2)
  1. TEMODAL [Suspect]
     Indication: BRAIN NEOPLASM
     Dosage: UNK
     Route: 048
  2. RESPRIM [Concomitant]

REACTIONS (5)
  - Platelet transfusion [Recovering/Resolving]
  - Transfusion [Recovering/Resolving]
  - Convulsion [Recovering/Resolving]
  - Bone marrow failure [Recovering/Resolving]
  - Pancytopenia [Recovering/Resolving]
